FAERS Safety Report 6279378-2 (Version None)
Quarter: 2009Q3

REPORT INFORMATION
  Report Type: 
  Country: None (occurrence: None)
  Receive Date: 20090721
  Receipt Date: 20090709
  Transmission Date: 20100115
  Serious: Yes (Other)
  Sender: FDA-Public Use
  Company Number: 230175K09DEU

PATIENT
  Sex: Male

DRUGS (1)
  1. REBIF [Suspect]

REACTIONS (4)
  - CHILLS [None]
  - CONVULSION [None]
  - INJECTION SITE ERYTHEMA [None]
  - PAIN [None]
